FAERS Safety Report 6699164-9 (Version None)
Quarter: 2010Q2

REPORT INFORMATION
  Report Type: 
  Country: None (occurrence: None)
  Receive Date: 20100427
  Receipt Date: 20100419
  Transmission Date: 20101027
  Serious: Yes (Other)
  Sender: FDA-Public Use
  Company Number: GB-JNJFOC-20100400304

PATIENT
  Age: 11 Year
  Sex: Male
  Weight: 40.7 kg

DRUGS (5)
  1. CONCERTA [Suspect]
     Indication: DYSLEXIA
     Route: 048
  2. CONCERTA [Suspect]
     Indication: DYSPRAXIA
     Route: 048
  3. CONCERTA [Suspect]
     Indication: AUTISM SPECTRUM DISORDER
     Route: 048
  4. CONCERTA [Suspect]
     Indication: ATTENTION DEFICIT/HYPERACTIVITY DISORDER
     Route: 048
  5. MELATONIN [Concomitant]
     Indication: SLEEP DISORDER THERAPY
     Route: 065

REACTIONS (7)
  - ABNORMAL BEHAVIOUR [None]
  - ABNORMAL SENSATION IN EYE [None]
  - ATAXIA [None]
  - DIZZINESS [None]
  - IRRITABILITY [None]
  - MYDRIASIS [None]
  - VISION BLURRED [None]
